FAERS Safety Report 14167153 (Version 1)
Quarter: 2017Q4

REPORT INFORMATION
  Report Type: Spontaneous
  Country: SA (occurrence: SA)
  Receive Date: 20171108
  Receipt Date: 20171108
  Transmission Date: 20180321
  Serious: Yes (Life-Threatening, Hospitalization, Other)
  Sender: FDA-Public Use
  Company Number: SA-SUN PHARMACEUTICAL INDUSTRIES LTD-2017R1-153744

PATIENT
  Age: 4 Month
  Sex: Male

DRUGS (2)
  1. OCTREOTIDE. [Suspect]
     Active Substance: OCTREOTIDE
     Indication: HYPOGLYCAEMIA
     Dosage: 30 ?G/KG, DAILY
     Route: 065
  2. OCTREOTIDE. [Suspect]
     Active Substance: OCTREOTIDE
     Dosage: 20 ?G/KG, DAILY
     Route: 065

REACTIONS (3)
  - Necrotising colitis [Recovering/Resolving]
  - Rotavirus infection [Recovering/Resolving]
  - Gastroenteritis [Recovering/Resolving]
